FAERS Safety Report 9492525 (Version 1)
Quarter: 2013Q3

REPORT INFORMATION
  Report Type: Spontaneous
  Country: MX (occurrence: MX)
  Receive Date: 20130830
  Receipt Date: 20130830
  Transmission Date: 20140515
  Serious: Yes (Other)
  Sender: FDA-Public Use
  Company Number: PHHY2013MX094730

PATIENT
  Age: 67 Year
  Sex: Female

DRUGS (3)
  1. DIOVAN [Suspect]
     Indication: HYPERTENSION
     Dosage: 2 DF (80MG), DAILY
     Route: 048
     Dates: start: 200802, end: 200802
  2. DIOVAN [Suspect]
     Dosage: 0.5 DF (160MG), BID (IN THE MORNING AND AT NIGHT)
     Route: 048
     Dates: start: 200804, end: 201307
  3. DIOVAN [Suspect]
     Dosage: 0.5 DF (160MG), BID (IN THE MORNING AND AT NIGHT)
     Route: 048
     Dates: start: 201307

REACTIONS (12)
  - Blood pressure increased [Not Recovered/Not Resolved]
  - Osteoporosis [Unknown]
  - Malaise [Recovered/Resolved]
  - Gastric infection [Recovered/Resolved]
  - Abdominal pain upper [Recovered/Resolved]
  - Diarrhoea [Recovered/Resolved]
  - Vomiting [Recovered/Resolved]
  - Stress [Unknown]
  - Anxiety [Unknown]
  - Dizziness [Recovered/Resolved]
  - Nausea [Recovered/Resolved]
  - Wrong technique in drug usage process [Not Recovered/Not Resolved]
